FAERS Safety Report 5625158-8 (Version None)
Quarter: 2008Q1

REPORT INFORMATION
  Report Type: 
  Country: None (occurrence: None)
  Receive Date: 20080208
  Receipt Date: 20080206
  Transmission Date: 20080703
  Serious: Yes (Other)
  Sender: FDA-Public Use
  Company Number: 144-21880-08011590

PATIENT
  Sex: Male

DRUGS (1)
  1. REVLIMID [Suspect]
     Indication: MULTIPLE MYELOMA
     Dosage: 25 MG, DAILY, ORAL
     Route: 048
     Dates: start: 20080101, end: 20080101

REACTIONS (3)
  - FACE OEDEMA [None]
  - PRURITUS [None]
  - RASH [None]
